FAERS Safety Report 26208341 (Version 1)
Quarter: 2025Q4

REPORT INFORMATION
  Report Type: Spontaneous
  Country: CA (occurrence: None)
  Receive Date: 20251226
  Receipt Date: 20251226
  Transmission Date: 20260117
  Serious: No
  Sender: FDA-CTU
  Company Number: None

PATIENT
  Age: 28 Year
  Sex: Female
  Weight: 83 kg

DRUGS (6)
  1. ORALAIR [Suspect]
     Active Substance: ANTHOXANTHUM ODORATUM POLLEN\DACTYLIS GLOMERATA POLLEN\LOLIUM PERENNE POLLEN\PHLEUM PRATENSE POLLEN\
     Indication: Seasonal allergy
     Dosage: OTHER STRENGTH : IR;?OTHER QUANTITY : 1 TABLET(S);?FREQUENCY : DAILY;
     Route: 060
  2. Pulmicourt [Concomitant]
  3. ORALAIR [Concomitant]
     Active Substance: ANTHOXANTHUM ODORATUM POLLEN\DACTYLIS GLOMERATA POLLEN\LOLIUM PERENNE POLLEN\PHLEUM PRATENSE POLLEN\
  4. omega 3 suppliment gummies [Concomitant]
  5. multivitamin gummies [Concomitant]
  6. reactine [Concomitant]

REACTIONS (5)
  - Throat irritation [None]
  - Flatulence [None]
  - Pain [None]
  - Oesophageal pain [None]
  - Eructation [None]

NARRATIVE: CASE EVENT DATE: 20251225
